FAERS Safety Report 8512226-6 (Version None)
Quarter: 2012Q3

REPORT INFORMATION
  Report Type: 
  Country: None (occurrence: None)
  Receive Date: 20120716
  Receipt Date: 20120419
  Transmission Date: 20120928
  Serious: Yes (Other)
  Sender: FDA-Public Use
  Company Number: CA-ASTRAZENECA-2012SE47157

PATIENT
  Age: 41 Year
  Sex: Male

DRUGS (2)
  1. MEROPENEM [Suspect]
     Indication: LEMIERRE SYNDROME
     Route: 042
  2. VANCOMYCIN [Concomitant]
     Indication: LEMIERRE SYNDROME

REACTIONS (2)
  - CAROTID ARTERY ANEURYSM [None]
  - EPISTAXIS [None]
